FAERS Safety Report 10633474 (Version 1)
Quarter: 2014Q4

REPORT INFORMATION
  Report Type: Report from Study
  Country: PL (occurrence: PL)
  Receive Date: 20141205
  Receipt Date: 20141205
  Transmission Date: 20150529
  Serious: Yes (Hospitalization)
  Sender: FDA-Public Use
  Company Number: PL-VERTEX PHARMACEUTICALS-2014-004768

PATIENT
  Age: 46 Year
  Sex: Male

DRUGS (4)
  1. REBETOL [Suspect]
     Active Substance: RIBAVIRIN
     Indication: HEPATITIS C
     Dosage: 1200 MG, QD
     Route: 065
  2. PEGINTRON [Suspect]
     Active Substance: PEGINTERFERON ALFA-2B
     Indication: HEPATITIS C
     Dosage: 80 ?G, UNK
     Route: 065
  3. TELAPREVIR [Suspect]
     Active Substance: TELAPREVIR
     Indication: HEPATITIS C
     Dosage: 2250 MG, QD
     Route: 048
  4. PEGINTRON [Suspect]
     Active Substance: PEGINTERFERON ALFA-2B
     Dosage: 150 ?G, UNK
     Route: 065

REACTIONS (9)
  - Lung disorder [Unknown]
  - Depression [Unknown]
  - Cough [Unknown]
  - Influenza like illness [Unknown]
  - Haemoptysis [Unknown]
  - Neutropenia [Unknown]
  - Asthenia [Unknown]
  - Pruritus [Unknown]
  - Dyspepsia [Unknown]
